FAERS Safety Report 25355362 (Version 2)
Quarter: 2025Q3

REPORT INFORMATION
  Report Type: Spontaneous
  Country: US (occurrence: US)
  Receive Date: 20250524
  Receipt Date: 20250919
  Transmission Date: 20251021
  Serious: No
  Sender: SANOFI AVENTIS
  Company Number: US-SA-2025SA147342

PATIENT
  Age: 2 Year
  Sex: Male

DRUGS (1)
  1. DUPIXENT [Suspect]
     Active Substance: DUPILUMAB
     Indication: Eczema
     Dosage: 300 MG, Q4W
     Route: 058
     Dates: start: 20250407

REACTIONS (12)
  - Seasonal allergy [Recovering/Resolving]
  - Mood altered [Unknown]
  - Emotional disorder [Unknown]
  - Activities of daily living decreased [Unknown]
  - Urticaria [Recovering/Resolving]
  - Sleep disorder due to a general medical condition [Not Recovered/Not Resolved]
  - Condition aggravated [Not Recovered/Not Resolved]
  - Eczema [Not Recovered/Not Resolved]
  - Pruritus [Not Recovered/Not Resolved]
  - Erythema [Not Recovered/Not Resolved]
  - Skin burning sensation [Not Recovered/Not Resolved]
  - Therapeutic response shortened [Not Recovered/Not Resolved]

NARRATIVE: CASE EVENT DATE: 20250101
